FAERS Safety Report 9135725 (Version 1)
Quarter: 2013Q1

REPORT INFORMATION
  Report Type: Report from Study
  Country: FR (occurrence: FR)
  Receive Date: 20130304
  Receipt Date: 20130304
  Transmission Date: 20140127
  Serious: Yes (Death, Other)
  Sender: FDA-Public Use
  Company Number: FR-GENZYME-THYM-1003686

PATIENT
  Age: 62 Year
  Sex: Male

DRUGS (3)
  1. THYMOGLOBULINE [Suspect]
     Indication: BONE MARROW CONDITIONING REGIMEN
     Dosage: UNK
     Route: 065
     Dates: start: 20110621, end: 20110624
  2. EVOLTRA [Suspect]
     Indication: BONE MARROW CONDITIONING REGIMEN
     Dosage: UNK
     Route: 065
     Dates: start: 20110621, end: 20110624
  3. BUSILVEX [Suspect]
     Indication: BONE MARROW CONDITIONING REGIMEN
     Dosage: UNK
     Route: 065
     Dates: start: 20110621, end: 20110624

REACTIONS (4)
  - Graft versus host disease in intestine [Fatal]
  - Acute graft versus host disease in liver [Fatal]
  - Bone marrow failure [Recovered/Resolved]
  - Graft versus host disease [Unknown]
